FAERS Safety Report 5275225-6 (Version None)
Quarter: 2007Q1

REPORT INFORMATION
  Report Type: 
  Country: None (occurrence: None)
  Receive Date: 20061219
  Receipt Date: 20060901
  Transmission Date: 20070707
  Serious: Yes (Other)
  Sender: FDA-Public Use
  Company Number: US-JNJFOC-20060400333

PATIENT
  Age: 51 Year
  Sex: Female
  Weight: 90.2658 kg

DRUGS (4)
  1. ORTHO EVRA [Suspect]
     Indication: CONTRACEPTION
     Dates: start: 20030201, end: 20060301
  2. ORTHO EVRA [Suspect]
     Indication: DYSMENORRHOEA
     Dates: start: 20030201, end: 20060301
  3. PAXIL [Concomitant]
  4. CLONIPEN (CLONAZEPAM) [Concomitant]

REACTIONS (1)
  - DEEP VEIN THROMBOSIS [None]
